FAERS Safety Report 23917224 (Version 1)
Quarter: 2024Q2

REPORT INFORMATION
  Report Type: Spontaneous
  Country: US (occurrence: US)
  Receive Date: 20240529
  Receipt Date: 20240529
  Transmission Date: 20240716
  Serious: Yes (Other)
  Sender: FDA-Public Use
  Company Number: US-INSUD PHARMA-2405US04171

PATIENT

DRUGS (1)
  1. MIDODRINE HYDROCHLORIDE [Suspect]
     Active Substance: MIDODRINE HYDROCHLORIDE
     Indication: Orthostatic hypotension
     Dosage: UNKNOWN
     Route: 065

REACTIONS (5)
  - Posterior reversible encephalopathy syndrome [Recovering/Resolving]
  - Depressed level of consciousness [Recovering/Resolving]
  - Hypertension [Recovering/Resolving]
  - Swelling face [Recovering/Resolving]
  - Swollen tongue [Recovering/Resolving]
